FAERS Safety Report 9686672 (Version 1)
Quarter: 2013Q4

REPORT INFORMATION
  Report Type: Spontaneous
  Country: SI (occurrence: SI)
  Receive Date: 20131113
  Receipt Date: 20131113
  Transmission Date: 20140711
  Serious: Yes (Hospitalization, Other)
  Sender: FDA-Public Use
  Company Number: SI-BAYER-2013-134819

PATIENT
  Age: 32 Year
  Sex: Female

DRUGS (4)
  1. ACETYLSALICYLIC ACID({=100 MG) [Suspect]
     Indication: THROMBOSIS PROPHYLAXIS
     Dosage: 100 MG, UNK
  2. ACETYLSALICYLIC ACID({=100 MG) [Suspect]
     Indication: TRICUSPID VALVE REPLACEMENT
  3. FRAGMIN [Concomitant]
     Indication: ANTICOAGULANT THERAPY
     Dosage: 100 IU/KG, BID, TO REACH TARGET LEVEL OF ANTI-XA OF 0.6 - 1.1 IU/ML
     Route: 058
  4. FRAGMIN [Concomitant]
     Indication: TRICUSPID VALVE REPLACEMENT

REACTIONS (5)
  - Maternal exposure during pregnancy [None]
  - Haemorrhage in pregnancy [None]
  - Atrial flutter [None]
  - Premature separation of placenta [None]
  - Foetal growth restriction [None]
